FAERS Safety Report 10528165 (Version 6)
Quarter: 2015Q3

REPORT INFORMATION
  Report Type: Spontaneous
  Country: US (occurrence: None)
  Receive Date: 20141014
  Receipt Date: 20150803
  Transmission Date: 20151125
  Serious: Yes (Hospitalization, Other)
  Sender: FDA-Public Use
  Company Number: ADR-2014-01801

PATIENT
  Age: 60 Year
  Sex: Male

DRUGS (24)
  1. PERCOCET [Suspect]
     Active Substance: ACETAMINOPHEN\OXYCODONE HYDROCHLORIDE
     Route: 058
     Dates: start: 20140211
  2. ZOFRAN ODT [Suspect]
     Active Substance: ONDANSETRON HYDROCHLORIDE
     Indication: NAUSEA
     Dosage: ODT 4MG ORAL TABLET DISPERSIBLE 1 PILL Q 8-12 HOURS PRN FOR NAUSEA; Q8-12H
     Dates: start: 20141002
  3. AMLODIPINE AND ATORVASTATIN [Suspect]
     Active Substance: AMLODIPINE BESYLATE\ATORVASTATIN CALCIUM TRIHYDRATE
     Indication: ILL-DEFINED DISORDER
     Dosage: 5-20 MG
     Dates: start: 20140211
  4. CARVEDILOL 6.25 MG [Suspect]
     Active Substance: CARVEDILOL
     Dosage: 6.25MG, ORAL TABLET, 1 TABLET/12HOURS, HOLD FOR SYSTOLIC BP
     Route: 048
     Dates: start: 20141105
  5. COREG [Suspect]
     Active Substance: CARVEDILOL
     Dosage: ONCE DAILY WITH MEALS
     Dates: start: 20140211
  6. GLUCAGEN HYPOKIT [Suspect]
     Active Substance: GLUCAGON HYDROCHLORIDE
     Dates: start: 20140510
  7. LIDOCAINE 5% [Suspect]
     Active Substance: LIDOCAINE
     Dosage: 5 PCT EXTERNAL PATCH
     Dates: start: 20140211
  8. OXYCODONE HYDROCHLORIDE. [Suspect]
     Active Substance: OXYCODONE HYDROCHLORIDE
     Dosage: 1 TAB TWICE DAILY
     Route: 048
     Dates: start: 20140211
  9. TRIPHROCAPS [Suspect]
     Active Substance: ASCORBIC ACID\BIOTIN\CALCIUM PANTOTHENATE\CYANOCOBALAMIN\FOLIC ACID\NIACINAMIDE\PYRIDOXINE HYDROCHLORIDE\RIBOFLAVIN\THIAMINE HYDROCHLORIDE
     Dosage: 1MG, ORAL CAPSULE
     Route: 048
     Dates: start: 20140509
  10. LIORESAL [Suspect]
     Active Substance: BACLOFEN
     Indication: MUSCLE SPASTICITY
     Dosage: ONCE DAILY WITH MEALS
  11. CELEXA [Suspect]
     Active Substance: CITALOPRAM HYDROBROMIDE
     Dosage: 20MG ORAL TABLET (CITALOPRAM HYDROBROMIDE) 1 TABLET DAILY
     Dates: start: 20140211
  12. EQ SENNA-S 8.6-50MG [Suspect]
     Active Substance: DOCUSATE SODIUM\SENNOSIDES
     Dosage: 8.6-50MG ORAL TABLET 2 TABLETS DAILY AS NEEDED
     Dates: start: 20140211
  13. PERCOCET [Suspect]
     Active Substance: ACETAMINOPHEN\OXYCODONE HYDROCHLORIDE
     Indication: PAIN
     Dosage: 5-325 MG , ORAL TABLET 2 EVERY 4 HOURS AS NEEDED FOR PAIN
     Dates: start: 20140815
  14. ATORVASTATIN CALCIUM. [Suspect]
     Active Substance: ATORVASTATIN CALCIUM
     Dates: start: 20140220
  15. NOVOLIN R [Suspect]
     Active Substance: INSULIN HUMAN
     Dosage: 100 UNIT ML INJECTION SOLUTION
     Dates: start: 20140318
  16. EQL OMEPRAZOLE 20MG ORAL TABLET DELAYED RELEASE [Suspect]
     Active Substance: OMEPRAZOLE
     Route: 048
     Dates: start: 20140211
  17. RENVELA [Suspect]
     Active Substance: SEVELAMER CARBONATE
     Route: 048
     Dates: start: 20140211
  18. ZEMPLAR [Suspect]
     Active Substance: PARICALCITOL
     Dosage: 5MCG/ML INTRAVENOUS SOLUTION,
     Route: 042
     Dates: start: 20140211
  19. MIRALAX [Suspect]
     Active Substance: POLYETHYLENE GLYCOL 3350
     Dosage: CAPSULE WITH 8OZ WATER AT BEDTIME AS NEEDED
     Dates: start: 20140211
  20. OMEPRAZOLE 20MG [Suspect]
     Active Substance: OMEPRAZOLE
     Dosage: DELAYED RESPONSE
     Route: 048
     Dates: start: 20140228
  21. GABAPENTIN 100 MG. CAPSULE [Suspect]
     Active Substance: GABAPENTIN
     Dates: start: 20140211
  22. SEVELAMER CARBONATE. [Suspect]
     Active Substance: SEVELAMER CARBONATE
     Dosage: 1 TAB WITH MEALS
     Route: 048
     Dates: start: 20140918
  23. LIORESAL [Suspect]
     Active Substance: BACLOFEN
     Dosage: ONCE DAILY WITH MEALS
  24. ZOLPIDEM TARTRATE 5 MG [Suspect]
     Active Substance: ZOLPIDEM TARTRATE
     Dosage: 5MG, ORAL TABLET, START DATE 03/18/2014
     Route: 048
     Dates: start: 20140318

REACTIONS (7)
  - Device dislocation [None]
  - Muscle spasticity [None]
  - Dermatitis contact [None]
  - Implant site reaction [None]
  - Muscle rigidity [None]
  - Device battery issue [None]
  - Nausea [None]
